FAERS Safety Report 12329264 (Version 4)
Quarter: 2016Q2

REPORT INFORMATION
  Report Type: Spontaneous
  Country: PT (occurrence: PT)
  Receive Date: 20160503
  Receipt Date: 20160512
  Transmission Date: 20160815
  Serious: Yes (Death, Other)
  Sender: FDA-Public Use
  Company Number: PT-ROCHE-1747055

PATIENT
  Age: 65 Year
  Sex: Female
  Weight: 54 kg

DRUGS (12)
  1. HERCEPTIN [Suspect]
     Active Substance: TRASTUZUMAB
     Indication: HER-2 POSITIVE BREAST CANCER
     Dosage: LOADING DOSE; FOLLOWING DOSES:420MG, 3/3WEEKS
     Route: 042
     Dates: start: 20120926, end: 20130220
  2. LAPATINIB [Suspect]
     Active Substance: LAPATINIB
     Indication: HER-2 POSITIVE BREAST CANCER
     Route: 065
     Dates: start: 20130822, end: 20140411
  3. XELODA [Suspect]
     Active Substance: CAPECITABINE
     Route: 065
     Dates: start: 20150722
  4. NAB-PACLITAXEL [Suspect]
     Active Substance: PACLITAXEL
     Indication: HER-2 POSITIVE BREAST CANCER
     Route: 042
     Dates: start: 20150107, end: 20150401
  5. LETROZOLE. [Concomitant]
     Active Substance: LETROZOLE
  6. PACLITAXEL. [Suspect]
     Active Substance: PACLITAXEL
     Indication: HER-2 POSITIVE BREAST CANCER
     Route: 065
     Dates: start: 20120727, end: 20130430
  7. HERCEPTIN [Suspect]
     Active Substance: TRASTUZUMAB
     Dosage: LOADING DOSE:432MG;FOLLOWING DOSES:324MG 3/3 WEEKS
     Route: 042
     Dates: start: 20140903, end: 20141105
  8. XELODA [Suspect]
     Active Substance: CAPECITABINE
     Indication: HER-2 POSITIVE BREAST CANCER
     Dosage: 1650MG AFTER BREAKFAST+1650MG AFTER DINNER
     Route: 048
     Dates: start: 20130822, end: 20140411
  9. ANASTROZOLE. [Suspect]
     Active Substance: ANASTROZOLE
     Indication: HER-2 POSITIVE BREAST CANCER
     Route: 065
     Dates: start: 20140903, end: 20141105
  10. KADCYLA [Suspect]
     Active Substance: ADO-TRASTUZUMAB EMTANSINE
     Indication: HER-2 POSITIVE BREAST CANCER
     Dosage: DOSE: 194 MG
     Route: 042
     Dates: start: 20150520, end: 20150722
  11. HERCEPTIN [Suspect]
     Active Substance: TRASTUZUMAB
     Dosage: WITHOUT LOADING DOSE
     Route: 042
     Dates: start: 20150107, end: 20150401
  12. VINORELBINE [Suspect]
     Active Substance: VINORELBINE\VINORELBINE TARTRATE
     Indication: HER-2 POSITIVE BREAST CANCER
     Route: 065
     Dates: start: 20140529, end: 20140808

REACTIONS (6)
  - Death [Fatal]
  - Toxicity to various agents [Recovered/Resolved]
  - Asthenia [Not Recovered/Not Resolved]
  - General physical health deterioration [Not Recovered/Not Resolved]
  - Anaemia [Not Recovered/Not Resolved]
  - Bone marrow toxicity [Recovered/Resolved]

NARRATIVE: CASE EVENT DATE: 20150925
